FAERS Safety Report 24121734 (Version 1)
Quarter: 2024Q3

REPORT INFORMATION
  Report Type: Report from Study
  Country: US (occurrence: US)
  Receive Date: 20240722
  Receipt Date: 20240722
  Transmission Date: 20241017
  Serious: Yes (Hospitalization, Other)
  Sender: BAUSCH AND LOMB
  Company Number: US-BAUSCH-BL-2024-011143

PATIENT

DRUGS (2)
  1. BUPROPION HYDROCHLORIDE XL [Suspect]
     Active Substance: BUPROPION HYDROCHLORIDE
     Indication: Product used for unknown indication
     Dosage: 80 TABLETS
     Route: 048
  2. CITALOPRAM HYDROBROMIDE [Suspect]
     Active Substance: CITALOPRAM HYDROBROMIDE
     Indication: Product used for unknown indication
     Route: 048

REACTIONS (22)
  - Cardiotoxicity [Recovering/Resolving]
  - Toxicity to various agents [Recovering/Resolving]
  - Hypotension [Recovering/Resolving]
  - Torsade de pointes [Recovering/Resolving]
  - Pupil fixed [Recovering/Resolving]
  - Disease recurrence [Recovering/Resolving]
  - Seizure [Recovering/Resolving]
  - Arrhythmic storm [Recovering/Resolving]
  - Paralysis [Recovering/Resolving]
  - Ventricular tachycardia [Recovering/Resolving]
  - Myoclonus [Recovering/Resolving]
  - Suicide attempt [Unknown]
  - Unresponsive to stimuli [Recovering/Resolving]
  - Status epilepticus [Recovering/Resolving]
  - Ventricular arrhythmia [Recovering/Resolving]
  - Intentional self-injury [Unknown]
  - Supraventricular tachycardia [Recovering/Resolving]
  - Disease progression [Recovering/Resolving]
  - Tachyarrhythmia [Recovering/Resolving]
  - Cardiac arrest [Recovering/Resolving]
  - Vomiting [Recovering/Resolving]
  - Intentional overdose [Unknown]
